FAERS Safety Report 21405300 (Version 3)
Quarter: 2023Q1

REPORT INFORMATION
  Report Type: Spontaneous
  Country: US (occurrence: US)
  Receive Date: 20221004
  Receipt Date: 20230126
  Transmission Date: 20230417
  Serious: No
  Sender: FDA-Public Use
  Company Number: US-BRISTOL-MYERS SQUIBB COMPANY-2022-115202

PATIENT
  Age: 68 Year
  Sex: Female
  Weight: 40.78 kg

DRUGS (1)
  1. POMALYST [Suspect]
     Active Substance: POMALIDOMIDE
     Indication: Plasma cell myeloma
     Dosage: DAILY
     Route: 048
     Dates: start: 20220806

REACTIONS (3)
  - Back pain [Unknown]
  - Diarrhoea [Recovering/Resolving]
  - Gastric disorder [Unknown]

NARRATIVE: CASE EVENT DATE: 20220920
